FAERS Safety Report 16022652 (Version 1)
Quarter: 2019Q2

REPORT INFORMATION
  Report Type: Spontaneous
  Country: US (occurrence: US)
  Receive Date: 20190301
  Receipt Date: 20190301
  Transmission Date: 20190711
  Serious: Yes (Other)
  Sender: FDA-Public Use
  Company Number: None

PATIENT
  Age: 79 Year
  Sex: Male
  Weight: 74.25 kg

DRUGS (20)
  1. ACARBOSE. [Concomitant]
     Active Substance: ACARBOSE
  2. BYDUREON [Concomitant]
     Active Substance: EXENATIDE
  3. DOXEPIN [Concomitant]
     Active Substance: DOXEPIN
  4. FISH OIL [Concomitant]
     Active Substance: FISH OIL
  5. ACYCLOVIR. [Concomitant]
     Active Substance: ACYCLOVIR
  6. ULTRAM [Concomitant]
     Active Substance: TRAMADOL HYDROCHLORIDE
  7. VITAMIN D3 [Concomitant]
     Active Substance: CHOLECALCIFEROL
  8. FAMOTIDINE. [Concomitant]
     Active Substance: FAMOTIDINE
  9. METFORMIN HCL [Concomitant]
     Active Substance: METFORMIN HYDROCHLORIDE
  10. ASPIRIN. [Concomitant]
     Active Substance: ASPIRIN
  11. VICTOZA [Concomitant]
     Active Substance: LIRAGLUTIDE
  12. JARDIANCE [Concomitant]
     Active Substance: EMPAGLIFLOZIN
  13. LATANOPROST. [Concomitant]
     Active Substance: LATANOPROST
  14. REVLIMID [Concomitant]
     Active Substance: LENALIDOMIDE
  15. THIAMINE HCL [Concomitant]
     Active Substance: THIAMINE HYDROCHLORIDE
  16. DEXAMETHASONE. [Concomitant]
     Active Substance: DEXAMETHASONE
  17. NINLARO [Suspect]
     Active Substance: IXAZOMIB CITRATE
     Indication: PLASMA CELL MYELOMA
     Dosage: ?          OTHER FREQUENCY:ONCE WEEKLY;?
     Route: 048
     Dates: start: 20180207
  18. PROCHLORPERAZINE. [Concomitant]
     Active Substance: PROCHLORPERAZINE
  19. PRAVASTATIN. [Concomitant]
     Active Substance: PRAVASTATIN
  20. GABAPENTIN. [Concomitant]
     Active Substance: GABAPENTIN

REACTIONS (1)
  - Fatigue [None]
